FAERS Safety Report 5482160-7 (Version None)
Quarter: 2007Q4

REPORT INFORMATION
  Report Type: 
  Country: None (occurrence: None)
  Receive Date: 20071011
  Receipt Date: 20071003
  Transmission Date: 20080405
  Serious: Yes (Hospitalization)
  Sender: FDA-Public Use
  Company Number: US-AVENTIS-200718711GDDC

PATIENT
  Age: 54 Year
  Sex: Female

DRUGS (11)
  1. TAXOTERE [Suspect]
     Indication: UTERINE LEIOMYOSARCOMA
     Route: 042
     Dates: start: 20070907, end: 20070907
  2. GEMCITABINE HCL [Suspect]
     Indication: UTERINE LEIOMYOSARCOMA
     Route: 042
     Dates: start: 20070831, end: 20070907
  3. LEVAQUIN [Concomitant]
     Dosage: DOSE: UNK
  4. ACTOS [Concomitant]
     Route: 048
  5. BENTYL [Concomitant]
  6. CADUET [Concomitant]
     Dosage: DOSE: 2.5/20 MG
     Route: 048
  7. EFFEXOR [Concomitant]
     Indication: ANXIETY
     Route: 048
  8. GLUCOVANCE                         /01503701/ [Concomitant]
     Dosage: DOSE QUANTITY: 2
     Route: 048
  9. HEMOCYTE PLUS [Concomitant]
     Dosage: DOSE QUANTITY: 1
     Route: 048
  10. HYZAAR [Concomitant]
     Dosage: DOSE: 100/25 MG
     Route: 048
  11. ZETIA [Concomitant]
     Route: 048

REACTIONS (2)
  - BLOOD CREATININE INCREASED [None]
  - RENAL FAILURE [None]
